FAERS Safety Report 6089500-9 (Version None)
Quarter: 2009Q1

REPORT INFORMATION
  Report Type: 
  Country: None (occurrence: None)
  Receive Date: 20090220
  Receipt Date: 20090220
  Transmission Date: 20090719
  Serious: Yes (Disabling)
  Sender: FDA-Public Use
  Company Number: None

PATIENT

DRUGS (2)
  1. LOPRESSOR [Suspect]
     Indication: BLOOD PRESSURE
  2. TOPROL-XL [Suspect]
     Indication: BLOOD PRESSURE

REACTIONS (3)
  - BLOOD PRESSURE INADEQUATELY CONTROLLED [None]
  - DRUG PRESCRIBING ERROR [None]
  - MEDICATION ERROR [None]
